FAERS Safety Report 9752601 (Version 1)
Quarter: 2013Q4

REPORT INFORMATION
  Report Type: Report from Study
  Country: DE (occurrence: DE)
  Receive Date: 20131213
  Receipt Date: 20131213
  Transmission Date: 20140711
  Serious: Yes (Death)
  Sender: FDA-Public Use
  Company Number: DE-BEH-2013039366

PATIENT
  Age: 86 Year
  Sex: Female
  Weight: 49 kg

DRUGS (14)
  1. PRIVIGEN [Suspect]
     Dates: start: 20130226, end: 20130226
  2. PRIVIGEN [Suspect]
     Dates: start: 20130226, end: 20130226
  3. PRIVIGEN [Suspect]
     Indication: CHRONIC LYMPHOCYTIC LEUKAEMIA
     Dates: start: 20130717, end: 20130717
  4. PRIVIGEN [Suspect]
     Dates: start: 20130717, end: 20130717
  5. SIMVA-HEXAL [Concomitant]
  6. MAGNESIUM [Concomitant]
  7. KREON [Concomitant]
  8. ASPIRIN PROTECT [Concomitant]
     Dosage: 100MG
  9. PANTOPRAZOL [Concomitant]
     Dosage: 20MG
  10. AGILAMIN [Concomitant]
  11. OXYTOCIN [Concomitant]
     Dosage: 20MG
  12. LEVOFLOXACIN [Concomitant]
     Dosage: 500MG
  13. COTRIM FORTE [Concomitant]
     Dosage: 960MG
  14. ROCEPTIN [Concomitant]

REACTIONS (2)
  - Chronic lymphocytic leukaemia [Fatal]
  - Herpes simplex [Recovered/Resolved]
